FAERS Safety Report 5063028-7 (Version None)
Quarter: 2006Q3

REPORT INFORMATION
  Report Type: 
  Country: None (occurrence: None)
  Receive Date: 20060724
  Receipt Date: 20060630
  Transmission Date: 20061208
  Serious: Yes (Hospitalization)
  Sender: FDA-Public Use
  Company Number: 2006RR-02914

PATIENT
  Age: 77 Year
  Sex: Male

DRUGS (21)
  1. SIMVASTATIN [Suspect]
     Indication: HYPERLIPIDAEMIA
     Dosage: 40 MG, QD, ORAL
     Route: 048
  2. AMIODARONE (AMIODARONE) [Concomitant]
  3. CARVEDILOL [Concomitant]
  4. DIGOXIN [Concomitant]
  5. LEVOTHYROXINE SODIUM [Concomitant]
  6. FOSINOPRIL SODIUM [Concomitant]
  7. ASPIRIN [Concomitant]
  8. CLOPIDOGREL [Concomitant]
  9. ISOSORBIDE MONONITRATE [Concomitant]
  10. FERROUS SULPHATE (FERROUS SULFATE) [Concomitant]
  11. FOLIC ACID [Concomitant]
  12. VITAMIN E [Concomitant]
  13. LOSARTAN POSTASSIUM [Concomitant]
  14. TERAZOSIN HYDROCHLORIDE [Concomitant]
  15. ALITIZIDE-SPIRONOLACTONE (SPIRONOLACTONE, ALTIZIDE) [Concomitant]
  16. LASIX [Concomitant]
  17. WARFARIN SODIUM [Concomitant]
  18. ALBUTEROL SULFATE AND IPRATROPIUM BROMIDE [Concomitant]
  19. SALMETEROL [Concomitant]
  20. FLUNISOLIDE [Concomitant]
  21. ALBUTEROL SPIROS [Concomitant]

REACTIONS (10)
  - ALANINE AMINOTRANSFERASE INCREASED [None]
  - ASPARTATE AMINOTRANSFERASE INCREASED [None]
  - BLOOD CHOLESTEROL INCREASED [None]
  - BLOOD POTASSIUM INCREASED [None]
  - BLOOD UREA INCREASED [None]
  - CHROMATURIA [None]
  - INTERMITTENT CLAUDICATION [None]
  - PAIN IN JAW [None]
  - PERIPHERAL VASCULAR DISORDER [None]
  - RHABDOMYOLYSIS [None]
